FAERS Safety Report 11925944 (Version 2)
Quarter: 2016Q1

REPORT INFORMATION
  Report Type: Spontaneous
  Country: KR (occurrence: KR)
  Receive Date: 20160119
  Receipt Date: 20160122
  Transmission Date: 20160526
  Serious: Yes (Hospitalization)
  Sender: FDA-Public Use
  Company Number: KR-009507513-1601KOR005260

PATIENT
  Age: 57 Year
  Sex: Female
  Weight: 58.6 kg

DRUGS (18)
  1. DEX (DEXAMETHASONE SODIUM PHOSPHATE) [Concomitant]
     Dosage: 8 MG, QD
     Route: 042
     Dates: start: 20160106, end: 20160106
  2. MANNITOL. [Concomitant]
     Active Substance: MANNITOL
     Indication: PROPHYLAXIS
     Dosage: 100 ML, QD
     Route: 042
     Dates: start: 20160105, end: 20160105
  3. EMEND (FOSAPREPITANT DIMEGLUMINE) [Suspect]
     Active Substance: FOSAPREPITANT DIMEGLUMINE
     Indication: PROPHYLAXIS OF NAUSEA AND VOMITING
     Dosage: 150 MG, ONCE
     Route: 042
     Dates: start: 20160105, end: 20160105
  4. CISPLATIN. [Concomitant]
     Active Substance: CISPLATIN
     Indication: CHEMOTHERAPY
     Dosage: 150 MG, QD
     Route: 042
     Dates: start: 20160105, end: 20160105
  5. CISPLATIN. [Concomitant]
     Active Substance: CISPLATIN
     Indication: CHEMOTHERAPY
     Dosage: 10 MG, QD
     Route: 042
     Dates: start: 20160105, end: 20160105
  6. SCD MAGNESIUM OXIDE [Concomitant]
     Indication: CONSTIPATION PROPHYLAXIS
     Dosage: 500 MG, TID
     Route: 048
     Dates: start: 20151223, end: 20151231
  7. DUROGESIC [Concomitant]
     Active Substance: FENTANYL
     Indication: ANALGESIC THERAPY
     Dosage: 12 MICROGRAMS/H, QD
     Route: 062
     Dates: start: 20151116, end: 20160103
  8. CODEINE PHOSPHATE [Suspect]
     Active Substance: CODEINE PHOSPHATE
     Indication: COUGH
     Dosage: 20 MG, TID
     Route: 048
     Dates: start: 20151128
  9. SOLETON [Concomitant]
     Active Substance: ZALTOPROFEN
     Indication: ANALGESIC THERAPY
     Dosage: 80 MG, TID
     Route: 048
     Dates: start: 20151026
  10. KETOPROFEN. [Concomitant]
     Active Substance: KETOPROFEN
     Indication: ANALGESIC THERAPY
     Dosage: 100 MG, BID
     Route: 042
     Dates: start: 20151224, end: 20151229
  11. DEX (DEXAMETHASONE SODIUM PHOSPHATE) [Concomitant]
     Dosage: 8 MG, BID
     Route: 042
     Dates: start: 20160107, end: 20160108
  12. DEX (DEXAMETHASONE SODIUM PHOSPHATE) [Concomitant]
     Indication: ANTIEMETIC SUPPORTIVE CARE
     Dosage: 12 MG, QD
     Route: 042
     Dates: start: 20160105, end: 20160105
  13. ALOXI [Concomitant]
     Active Substance: PALONOSETRON HYDROCHLORIDE
     Indication: ANTIEMETIC SUPPORTIVE CARE
     Dosage: 0.25 MG, QD
     Route: 042
     Dates: start: 20160105, end: 20160105
  14. MUCOSTEN [Concomitant]
     Indication: PROPHYLAXIS
     Dosage: 300 MG, TID
     Route: 042
     Dates: start: 20151026, end: 20151231
  15. LASIX [Concomitant]
     Active Substance: FUROSEMIDE
     Indication: PROPHYLAXIS
     Dosage: 20 MG, QD
     Route: 042
     Dates: start: 20160105, end: 20160105
  16. ANYCOUGH [Concomitant]
     Indication: PROPHYLAXIS
     Dosage: 300 MG, BID
     Route: 048
     Dates: start: 20151019
  17. SURFOLASE [Concomitant]
     Indication: PROPHYLAXIS
     Dosage: 100 MG, BID
     Route: 048
     Dates: start: 20151026
  18. BOLGRE CAPSULES [Concomitant]
     Indication: ANAEMIA PROPHYLAXIS
     Dosage: 1 DF, BID
     Route: 048
     Dates: start: 20151223

REACTIONS (1)
  - Pyrexia [Recovered/Resolved]

NARRATIVE: CASE EVENT DATE: 20160112
